FAERS Safety Report 6867935-1 (Version None)
Quarter: 2010Q3

REPORT INFORMATION
  Report Type: 
  Country: None (occurrence: None)
  Receive Date: 20100722
  Receipt Date: 20100722
  Transmission Date: 20110219
  Serious: Yes (Hospitalization)
  Sender: FDA-Public Use
  Company Number: None

PATIENT
  Sex: Female
  Weight: 58.2 kg

DRUGS (2)
  1. VANCOMYCIN [Suspect]
     Indication: CYSTIC FIBROSIS
     Dosage: VANCOMYCIN 1GM IV PICC LINE
     Route: 042
     Dates: start: 20100714
  2. VANCOMYCIN [Suspect]
     Indication: STAPHYLOCOCCAL INFECTION
     Dosage: VANCOMYCIN 1GM IV PICC LINE
     Route: 042
     Dates: start: 20100714

REACTIONS (7)
  - CHEILITIS [None]
  - INFUSION RELATED REACTION [None]
  - LIP SWELLING [None]
  - PARAESTHESIA ORAL [None]
  - PRURITUS [None]
  - RASH [None]
  - URTICARIA [None]
